FAERS Safety Report 7502665-4 (Version None)
Quarter: 2011Q2

REPORT INFORMATION
  Report Type: 
  Country: None (occurrence: None)
  Receive Date: 20110525
  Receipt Date: 20110519
  Transmission Date: 20111010
  Serious: Yes (Death)
  Sender: FDA-Public Use
  Company Number: PHHY2011US06041

PATIENT
  Sex: Male

DRUGS (2)
  1. GLEEVEC [Suspect]
     Dosage: 800 MG, DAILY
     Route: 048
     Dates: start: 20100709
  2. ZOCOR [Concomitant]

REACTIONS (4)
  - CHEST DISCOMFORT [None]
  - DECREASED APPETITE [None]
  - DEATH [None]
  - FATIGUE [None]
